FAERS Safety Report 8064382-4 (Version None)
Quarter: 2012Q1

REPORT INFORMATION
  Report Type: 
  Country: None (occurrence: None)
  Receive Date: 20120123
  Receipt Date: 20120119
  Transmission Date: 20120608
  Serious: Yes (Other)
  Sender: FDA-Public Use
  Company Number: US-TEVA-318264USA

PATIENT
  Age: 64 Year
  Sex: Female
  Weight: 47.62 kg

DRUGS (2)
  1. FEXOFENADINE [Suspect]
     Indication: SEASONAL ALLERGY
     Dosage: 1/2 TABLET
     Route: 048
     Dates: start: 20120116, end: 20120116
  2. RISEDRONATE SODIUM [Concomitant]

REACTIONS (5)
  - HEADACHE [None]
  - CONFUSIONAL STATE [None]
  - WRONG TECHNIQUE IN DRUG USAGE PROCESS [None]
  - VISION BLURRED [None]
  - FREQUENT BOWEL MOVEMENTS [None]
